FAERS Safety Report 8306796 (Version 2)
Quarter: 2012Q4

REPORT INFORMATION
  Report Type: 
  Country: US (occurrence: None)
  Receive Date: 20111213
  Receipt Date: 20120914
  Transmission Date: 20130627
  Serious: Yes (Other)
  Sender: FDA-Public Use
  Company Number: 2011AP002890

PATIENT
  Age: 69 Year
  Sex: Male

DRUGS (1)
  1. AMIODARONE HYDROCHLORIDE [Suspect]
     Indication: PRODUCT USED FOR UNKNOWN INDICATION
     Dosage: 200 MG; BID

REACTIONS (8)
  - PERICARDIAL EFFUSION [None]
  - CARDIAC TAMPONADE [None]
  - HYPOTHYROIDISM [None]
  - DYSPNOEA EXERTIONAL [None]
  - FATIGUE [None]
  - BLOOD PRESSURE DECREASED [None]
  - JUGULAR VEIN DISTENSION [None]
  - CARDIOMEGALY [None]
